FAERS Safety Report 6725291-3 (Version None)
Quarter: 2010Q2

REPORT INFORMATION
  Report Type: 
  Country: None (occurrence: None)
  Receive Date: 20100513
  Receipt Date: 20100513
  Transmission Date: 20101027
  Serious: Yes (Disabling, Other)
  Sender: FDA-Public Use
  Company Number: None

PATIENT
  Sex: Female
  Weight: 89.3586 kg

DRUGS (5)
  1. CLARITHROMYCIN [Suspect]
     Indication: TUBERCULOSIS
     Dosage: 300MG 1 @ DAY
     Dates: start: 20090801
  2. RIFAMPIN [Suspect]
     Indication: TUBERCULOSIS
     Dosage: 500MG 1 2XDAY
     Dates: start: 20090801
  3. ETHAMBUTOL HYDROCHLORIDE [Suspect]
     Indication: TUBERCULOSIS
     Dosage: 25MG 1@DAY
     Dates: start: 20090801
  4. HYDROCHLOROTHIAZIDE [Suspect]
     Indication: HYPERTENSION
     Dosage: 400MG 2X2DAY
     Dates: start: 20000101
  5. LISINOPRIL [Suspect]
     Indication: HYPERTENSION
     Dosage: 1 @ DAY 10MG
     Dates: start: 20100116, end: 20100426

REACTIONS (7)
  - BLOOD GLUCOSE INCREASED [None]
  - COUGH [None]
  - EAR PAIN [None]
  - HEADACHE [None]
  - MUSCLE SPASMS [None]
  - OROPHARYNGEAL PAIN [None]
  - VISUAL ACUITY REDUCED [None]
